FAERS Safety Report 9225781 (Version 1)
Quarter: 2013Q2

REPORT INFORMATION
  Report Type: Report from Study
  Country: FR (occurrence: FR)
  Receive Date: 20130411
  Receipt Date: 20130411
  Transmission Date: 20140414
  Serious: Yes (Hospitalization)
  Sender: FDA-Public Use
  Company Number: FR-ROCHE-1212181

PATIENT
  Age: 29 Year
  Sex: Male
  Weight: 85 kg

DRUGS (1)
  1. TENECTEPLASE [Suspect]
     Indication: PULMONARY EMBOLISM
     Route: 040

REACTIONS (1)
  - Muscle haemorrhage [Recovered/Resolved]
